FAERS Safety Report 5396716-3 (Version None)
Quarter: 2007Q3

REPORT INFORMATION
  Report Type: 
  Country: None (occurrence: None)
  Receive Date: 20070718
  Receipt Date: 20061211
  Transmission Date: 20080115
  Serious: Yes (Hospitalization, Other)
  Sender: FDA-Public Use
  Company Number: 2006113166

PATIENT
  Age: 43 Year
  Sex: Female
  Weight: 88.5 kg

DRUGS (2)
  1. CELEBREX [Suspect]
     Indication: ABDOMINAL PAIN UPPER
     Dosage: 400 MG (200 MG, 2 IN 1 D), ORAL
     Route: 048
     Dates: start: 20040428
  2. CELEBREX [Suspect]
     Indication: BACK PAIN
     Dosage: 400 MG (200 MG, 2 IN 1 D), ORAL
     Route: 048
     Dates: start: 20040428

REACTIONS (1)
  - ISCHAEMIC STROKE [None]
